FAERS Safety Report 8257337-8 (Version None)
Quarter: 2012Q2

REPORT INFORMATION
  Report Type: 
  Country: None (occurrence: None)
  Receive Date: 20120403
  Receipt Date: 20120330
  Transmission Date: 20120825
  Serious: Yes (Other)
  Sender: FDA-Public Use
  Company Number: US-TEVA-328750USA

PATIENT
  Age: 43 Year
  Sex: Male

DRUGS (1)
  1. NUVIGIL [Suspect]
     Dosage: 150 MILLIGRAM;
     Route: 048

REACTIONS (2)
  - MYALGIA [None]
  - BLOOD CREATINE PHOSPHOKINASE INCREASED [None]
